FAERS Safety Report 5200485-7 (Version None)
Quarter: 2006Q4

REPORT INFORMATION
  Report Type: 
  Country: None (occurrence: None)
  Receive Date: 20061016
  Receipt Date: 20060623
  Transmission Date: 20070319
  Serious: No
  Sender: FDA-Public Use
  Company Number: 2006SP002520

PATIENT
  Sex: Male

DRUGS (3)
  1. LUNESTA [Suspect]
     Dosage: 3 MG; ORAL; 1.5 MG,ORAL
     Route: 048
     Dates: start: 20060401
  2. LUNESTA [Suspect]
     Dosage: 3 MG; ORAL; 1.5 MG,ORAL
     Route: 048
     Dates: start: 20060401
  3. AMLODIPINE BESYLATE [Concomitant]

REACTIONS (3)
  - DYSGEUSIA [None]
  - GASTRIC DISORDER [None]
  - PAIN [None]
